FAERS Safety Report 14519816 (Version 1)
Quarter: 2018Q1

REPORT INFORMATION
  Report Type: Spontaneous
  Country: US (occurrence: US)
  Receive Date: 20180210
  Receipt Date: 20180210
  Transmission Date: 20180509
  Serious: Yes (Other)
  Sender: FDA-Public Use
  Company Number: None

PATIENT
  Age: 9 Year
  Sex: Male
  Weight: 23.4 kg

DRUGS (1)
  1. OSELTAMIVIR PHOSHATE 30MG CAP ALVOGEN [Suspect]
     Active Substance: OSELTAMIVIR
     Indication: INFLUENZA
     Dosage: ?          QUANTITY:2 CAPSULE(S);?
     Route: 048
     Dates: start: 20180209, end: 20180209

REACTIONS (4)
  - Pyrexia [None]
  - Hallucination, visual [None]
  - Crying [None]
  - Therapy cessation [None]

NARRATIVE: CASE EVENT DATE: 20180209
